FAERS Safety Report 7024242-4 (Version None)
Quarter: 2010Q4

REPORT INFORMATION
  Report Type: 
  Country: None (occurrence: None)
  Receive Date: 20101001
  Receipt Date: 20100922
  Transmission Date: 20110411
  Serious: Yes (Other)
  Sender: FDA-Public Use
  Company Number: US-ROCHE-730045

PATIENT
  Age: 65 Year
  Sex: Male
  Weight: 65.8 kg

DRUGS (3)
  1. CLONAZEPAM [Suspect]
     Indication: ANXIETY
     Dosage: CO-INDICATION:TO CALM DOWN
     Route: 065
  2. CHANTIX [Interacting]
     Indication: SMOKING CESSATION THERAPY
     Dosage: FORM REPORTED:FILM-COATED TABLET
     Route: 048
     Dates: start: 20100801
  3. SEROQUEL [Interacting]
     Route: 065
     Dates: start: 20100801

REACTIONS (4)
  - ANXIETY [None]
  - DRUG INTERACTION [None]
  - NERVOUSNESS [None]
  - TOBACCO WITHDRAWAL SYMPTOMS [None]
